FAERS Safety Report 11665547 (Version 1)
Quarter: 2015Q4

REPORT INFORMATION
  Report Type: Spontaneous
  Country: US (occurrence: US)
  Receive Date: 20151027
  Receipt Date: 20151027
  Transmission Date: 20160304
  Serious: No
  Sender: FDA-Public Use
  Company Number: US-ELI_LILLY_AND_COMPANY-US200912006136

PATIENT
  Age: 81 Year
  Sex: Female

DRUGS (2)
  1. FORTEO [Suspect]
     Active Substance: TERIPARATIDE
     Indication: OSTEOPOROSIS
     Dosage: 20 UG, DAILY (1/D)
     Route: 065
     Dates: start: 20091218, end: 20091218
  2. FORTEO [Suspect]
     Active Substance: TERIPARATIDE
     Dosage: 20 UG, DAILY (1/D)
     Route: 065
     Dates: start: 20091220, end: 20091221

REACTIONS (7)
  - Malaise [Unknown]
  - Ageusia [Unknown]
  - Decreased appetite [Unknown]
  - Feeling abnormal [Unknown]
  - Nausea [Unknown]
  - Nasopharyngitis [Unknown]
  - Drug dose omission [Recovered/Resolved]

NARRATIVE: CASE EVENT DATE: 200912
